FAERS Safety Report 12411317 (Version 4)
Quarter: 2020Q3

REPORT INFORMATION
  Report Type: Report from Study
  Country: DE (occurrence: DE)
  Receive Date: 20160527
  Receipt Date: 20160727
  Transmission Date: 20201104
  Serious: Yes (Hospitalization)
  Sender: FDA-Public Use
  Company Number: DE-ROCHE-1764116

PATIENT
  Age: 65 Year
  Sex: Female
  Weight: 60.5 kg

DRUGS (8)
  1. ALECTINIB. [Suspect]
     Active Substance: ALECTINIB
     Indication: NON-SMALL CELL LUNG CANCER
     Route: 048
     Dates: start: 20150619
  2. PANTOPRAZOLE [Concomitant]
     Active Substance: PANTOPRAZOLE
     Indication: PROPHYLAXIS
     Route: 048
  3. PREGABALIN. [Concomitant]
     Active Substance: PREGABALIN
     Indication: POLYNEUROPATHY
     Route: 048
     Dates: start: 20160525
  4. NALOXONE/OXYCODONE HYDROCHLORIDE [Concomitant]
     Indication: BACK PAIN
     Dosage: 10/5MG
     Route: 048
  5. ALECTINIB. [Suspect]
     Active Substance: ALECTINIB
     Route: 048
     Dates: start: 20160428
  6. TORASEMIDE [Concomitant]
     Active Substance: TORSEMIDE
     Indication: PLEURAL EFFUSION
     Route: 065
  7. MIRTAZAPINE. [Concomitant]
     Active Substance: MIRTAZAPINE
     Indication: DEPRESSION
     Route: 048
  8. PRIMPERAN [Concomitant]
     Active Substance: METOCLOPRAMIDE HYDROCHLORIDE
     Indication: DEPRESSION
     Route: 048

REACTIONS (2)
  - Haematochezia [Recovered/Resolved]
  - Aphasia [Unknown]

NARRATIVE: CASE EVENT DATE: 20160523
